FAERS Safety Report 8548824-3 (Version None)
Quarter: 2012Q3

REPORT INFORMATION
  Report Type: 
  Country: None (occurrence: None)
  Receive Date: 20120730
  Receipt Date: 20120726
  Transmission Date: 20120928
  Serious: Yes (Hospitalization)
  Sender: FDA-Public Use
  Company Number: PHHY2012AR064207

PATIENT
  Sex: Male

DRUGS (1)
  1. EXELON [Suspect]
     Indication: DEMENTIA WITH LEWY BODIES
     Dosage: 4.6 MG\24HRS (9MG/ 5CM2/)
     Route: 062
     Dates: start: 20120601

REACTIONS (3)
  - ASPIRATION [None]
  - PNEUMONIA [None]
  - CHOKING [None]
